FAERS Safety Report 9399988 (Version 2)
Quarter: 2013Q3

REPORT INFORMATION
  Report Type: Spontaneous
  Country: VE (occurrence: VE)
  Receive Date: 20130715
  Receipt Date: 20130729
  Transmission Date: 20140515
  Serious: Yes (Other)
  Sender: FDA-Public Use
  Company Number: VE-ELI_LILLY_AND_COMPANY-VE201307003540

PATIENT
  Age: 57 Year
  Sex: Male

DRUGS (1)
  1. ZYPREXA [Suspect]
     Dosage: 5 MG, UNK
     Dates: start: 2010

REACTIONS (12)
  - Syncope [Unknown]
  - Road traffic accident [Unknown]
  - Diabetes mellitus [Unknown]
  - Glaucoma [Unknown]
  - Blood triglycerides increased [Unknown]
  - Weight increased [Unknown]
  - Psychotic disorder [Unknown]
  - Speech disorder [Unknown]
  - Vision blurred [Unknown]
  - Somnolence [Unknown]
  - Transaminases increased [Unknown]
  - Obesity [Unknown]
